FAERS Safety Report 10133708 (Version 1)
Quarter: 2014Q2

REPORT INFORMATION
  Report Type: Report from Study
  Country: MX (occurrence: MX)
  Receive Date: 20140428
  Receipt Date: 20140428
  Transmission Date: 20141212
  Serious: Yes (Other)
  Sender: FDA-Public Use
  Company Number: PHHY2014MX051446

PATIENT
  Age: 86 Year
  Sex: Female

DRUGS (7)
  1. EXELON PATCH [Suspect]
     Indication: SENILE DEMENTIA
     Dosage: 4.6 MG, QD (5CM2/4.6MG)
     Route: 062
     Dates: start: 201308
  2. EXELON PATCH [Suspect]
     Dosage: 9.6 MG, QD (5CM2/9.6MG)
     Route: 062
     Dates: start: 201311
  3. EXELON PATCH [Suspect]
     Dosage: 4.6 MG, QD (5CM2/4.6MG)
     Route: 062
  4. LERCANIDIPINE [Concomitant]
     Indication: BLOOD PRESSURE ABNORMAL
     Dosage: 1 UKN, DAILY
     Dates: start: 199904
  5. OMEPRAZOLE [Concomitant]
     Indication: GASTRIC DISORDER
     Dosage: 1 UKN, DAILY
     Dates: start: 199911
  6. SERENATA [Concomitant]
     Dosage: UNK UKN, UNK
     Dates: start: 201311
  7. ATACAND [Concomitant]
     Dosage: UNK UKN, UNK

REACTIONS (4)
  - Hiatus hernia [Not Recovered/Not Resolved]
  - Cough [Not Recovered/Not Resolved]
  - Abnormal behaviour [Recovered/Resolved]
  - Depression [Unknown]
